FAERS Safety Report 5937243-1 (Version None)
Quarter: 2008Q4

REPORT INFORMATION
  Report Type: 
  Country: None (occurrence: None)
  Receive Date: 20081031
  Receipt Date: 20080610
  Transmission Date: 20090506
  Serious: No
  Sender: FDA-Public Use
  Company Number: US-BAYER-200812566BCC

PATIENT
  Age: 26 Year
  Sex: Female
  Weight: 85 kg

DRUGS (4)
  1. ALEVE [Suspect]
     Indication: PAIN IN EXTREMITY
     Dosage: TOTAL DAILY DOSE: 440 MG  UNIT DOSE: 220 MG
     Route: 048
     Dates: start: 20080601, end: 20080601
  2. LEXAPRO [Concomitant]
  3. XYREM [Concomitant]
  4. DARVOCET [Concomitant]

REACTIONS (1)
  - PAIN IN EXTREMITY [None]
